FAERS Safety Report 6880581-9 (Version None)
Quarter: 2010Q3

REPORT INFORMATION
  Report Type: 
  Country: None (occurrence: None)
  Receive Date: 20100727
  Receipt Date: 20090710
  Transmission Date: 20110219
  Serious: No
  Sender: FDA-Public Use
  Company Number: A0794371A

PATIENT
  Age: 80 Year
  Sex: Male
  Weight: 72.7 kg

DRUGS (2)
  1. ZANTAC [Suspect]
     Dosage: 150MG AS REQUIRED
     Route: 048
     Dates: start: 20090101, end: 20090601
  2. NAPROXEN [Concomitant]
     Route: 048

REACTIONS (4)
  - HEADACHE [None]
  - SCOTOMA [None]
  - VASCULAR HEADACHE [None]
  - VISUAL IMPAIRMENT [None]
